FAERS Safety Report 7668791-4 (Version None)
Quarter: 2011Q3

REPORT INFORMATION
  Report Type: 
  Country: None (occurrence: None)
  Receive Date: 20110808
  Receipt Date: 20110801
  Transmission Date: 20111222
  Serious: Yes (Death, Other)
  Sender: FDA-Public Use
  Company Number: DE-ASTELLAS-2011US004693

PATIENT
  Age: 44 Year
  Sex: Female

DRUGS (2)
  1. TARCEVA [Suspect]
     Indication: LUNG ADENOCARCINOMA
     Dosage: UNK
     Route: 048
  2. TARCEVA [Suspect]
     Dosage: 600 MG EVERY 4 DAYS
     Route: 048

REACTIONS (6)
  - METASTASES TO CENTRAL NERVOUS SYSTEM [None]
  - METASTASES TO ABDOMINAL CAVITY [None]
  - SUBDURAL HYGROMA [None]
  - HAEMORRHAGE INTRACRANIAL [None]
  - BRAIN OEDEMA [None]
  - OVERDOSE [None]
